FAERS Safety Report 5867910-X (Version None)
Quarter: 2008Q3

REPORT INFORMATION
  Report Type: 
  Country: None (occurrence: None)
  Receive Date: 20080902
  Receipt Date: 20080829
  Transmission Date: 20090109
  Serious: Yes (Death, Life-Threatening, Hospitalization, Disabling, Other)
  Sender: FDA-Public Use
  Company Number: US-ABBOTT-08P-163-0473088-00

PATIENT
  Sex: Male
  Weight: 90.8 kg

DRUGS (4)
  1. HUMIRA [Suspect]
     Indication: RHEUMATOID ARTHRITIS
     Route: 050
     Dates: start: 20031001, end: 20080605
  2. PREDNISONE TAB [Concomitant]
     Indication: RHEUMATOID ARTHRITIS
     Dosage: 5 OR 7.5MG ONCE A DAY
     Route: 048
     Dates: start: 19950101
  3. ACETAMINOPHEN [Concomitant]
     Indication: PAIN
     Dosage: FOR ABOUT 10 YEARS
     Route: 048
  4. TRAMADOL HCL [Concomitant]
     Indication: PAIN
     Dosage: FOR ABOUT 10 YEARS
     Route: 048

REACTIONS (2)
  - COMA [None]
  - HEPATIC NEOPLASM MALIGNANT [None]
